FAERS Safety Report 7231893-0 (Version None)
Quarter: 2011Q1

REPORT INFORMATION
  Report Type: 
  Country: None (occurrence: None)
  Receive Date: 20110118
  Receipt Date: 20110107
  Transmission Date: 20110831
  Serious: Yes (Disabling, Other)
  Sender: FDA-Public Use
  Company Number: AR-MYLANLABS-2011S1000619

PATIENT
  Age: 15 Year
  Sex: Female

DRUGS (2)
  1. SEVOFLURANE [Suspect]
     Indication: GENERAL ANAESTHESIA
     Route: 055
     Dates: end: 20070101
  2. ULTIVA FOR INJECTION [Suspect]
     Indication: ANAESTHESIA
     Dates: end: 20070101

REACTIONS (5)
  - CONFUSIONAL STATE [None]
  - ALTERED STATE OF CONSCIOUSNESS [None]
  - GASTRECTOMY [None]
  - APNOEA [None]
  - TRACHEOSTOMY [None]
